FAERS Safety Report 13576444 (Version 2)
Quarter: 2017Q3

REPORT INFORMATION
  Report Type: Spontaneous
  Country: JP (occurrence: JP)
  Receive Date: 20170524
  Receipt Date: 20170706
  Transmission Date: 20171127
  Serious: Yes (Other)
  Sender: FDA-Public Use
  Company Number: PHJP2017JP017079

PATIENT
  Age: 67 Year
  Sex: Female

DRUGS (4)
  1. DIOVAN [Suspect]
     Active Substance: VALSARTAN
     Indication: HYPERTENSION
     Dosage: UNK
     Route: 048
     Dates: start: 200806
  2. ALKERAN [Concomitant]
     Active Substance: MELPHALAN
     Dosage: UNK UNK, QOD
     Route: 065
     Dates: start: 20110314, end: 20110411
  3. BAYASPIRIN [Concomitant]
     Active Substance: ASPIRIN
     Indication: THROMBOSIS
     Dosage: UNK
     Route: 065
     Dates: start: 200602
  4. ALKERAN [Concomitant]
     Active Substance: MELPHALAN
     Indication: SPLENOMEGALY
     Dosage: 2 MG, QD
     Route: 065
     Dates: start: 20110228

REACTIONS (3)
  - Haemoglobin decreased [Unknown]
  - Splenomegaly [Unknown]
  - Concomitant disease aggravated [Unknown]

NARRATIVE: CASE EVENT DATE: 201001
